FAERS Safety Report 15851567 (Version 1)
Quarter: 2019Q1

REPORT INFORMATION
  Report Type: Spontaneous
  Country: JP (occurrence: JP)
  Receive Date: 20190122
  Receipt Date: 20190122
  Transmission Date: 20190417
  Serious: Yes (Other)
  Sender: FDA-Public Use
  Company Number: JP-AMERIGEN PHARMACEUTICALS, INC-2019AMG000001

PATIENT

DRUGS (3)
  1. BEVACIZUMAB. [Suspect]
     Active Substance: BEVACIZUMAB
     Indication: NEOPLASM PROGRESSION
     Dosage: UNK, 15 COURSES
     Route: 065
  2. TEMOZOLOMIDE UNKNOWN [Suspect]
     Active Substance: TEMOZOLOMIDE
     Dosage: MAINTENANCE THERAPY (3 CYCLES)
     Route: 065
  3. TEMOZOLOMIDE UNKNOWN [Suspect]
     Active Substance: TEMOZOLOMIDE
     Indication: GLIOBLASTOMA
     Dosage: 75 MG/M2, OD, 7 DAYS A WEEK, 3 CYCLES
     Route: 065

REACTIONS (3)
  - Neoplasm progression [Unknown]
  - Cerebral infarction [Unknown]
  - Decreased appetite [Unknown]
